FAERS Safety Report 8297049-8 (Version None)
Quarter: 2012Q2

REPORT INFORMATION
  Report Type: 
  Country: None (occurrence: None)
  Receive Date: 20120417
  Receipt Date: 20120417
  Transmission Date: 20120825
  Serious: Yes (Hospitalization)
  Sender: FDA-Public Use
  Company Number: None

PATIENT
  Sex: Male

DRUGS (1)
  1. SUTENT [Suspect]
     Dosage: 50MG DAILY X 14 D PO
     Route: 048
     Dates: start: 20100908, end: 20120224

REACTIONS (4)
  - HYPERTENSION [None]
  - VOMITING [None]
  - NAUSEA [None]
  - PLEURAL EFFUSION [None]
